FAERS Safety Report 13140083 (Version 1)
Quarter: 2017Q1

REPORT INFORMATION
  Report Type: Spontaneous
  Country: US (occurrence: US)
  Receive Date: 20170123
  Receipt Date: 20170123
  Transmission Date: 20170428
  Serious: No
  Sender: FDA-Public Use
  Company Number: US-UNITED THERAPEUTICS-UNT-2016-017285

PATIENT
  Age: 38 Year
  Sex: Female
  Weight: 95.24 kg

DRUGS (2)
  1. REMODULIN [Suspect]
     Active Substance: TREPROSTINIL
     Indication: PULMONARY HYPERTENSION
     Dosage: 0.06 ?G/KG, CONTINUING
     Route: 058
     Dates: start: 20160922
  2. TRACLEER [Concomitant]
     Active Substance: BOSENTAN
     Indication: PRODUCT USED FOR UNKNOWN INDICATION

REACTIONS (7)
  - Infusion site reaction [Unknown]
  - Malaise [Unknown]
  - Injection site pain [Not Recovered/Not Resolved]
  - Infusion site haemorrhage [Unknown]
  - Infusion site induration [Unknown]
  - Heart rate increased [Unknown]
  - Feeling hot [Unknown]

NARRATIVE: CASE EVENT DATE: 201611
